FAERS Safety Report 25621582 (Version 1)
Quarter: 2025Q3

REPORT INFORMATION
  Report Type: Spontaneous
  Country: VN (occurrence: VN)
  Receive Date: 20250730
  Receipt Date: 20250730
  Transmission Date: 20251020
  Serious: Yes (Hospitalization, Other)
  Sender: RANBAXY
  Company Number: VN-SUN PHARMACEUTICAL INDUSTRIES INC-2025R1-519344

PATIENT
  Age: 70 Year
  Sex: Female

DRUGS (7)
  1. AMITRIPTYLINE [Suspect]
     Active Substance: AMITRIPTYLINE
     Indication: Sleep disorder
     Dosage: 25 MILLIGRAM, DAILY
     Route: 065
  2. AMITRIPTYLINE [Suspect]
     Active Substance: AMITRIPTYLINE
     Indication: Migraine
  3. AMLODIPINE [Concomitant]
     Active Substance: AMLODIPINE BESYLATE
     Indication: Hypertension
     Dosage: 5 MILLIGRAM, DAILY
     Route: 065
  4. FLUNARIZINE [Concomitant]
     Active Substance: FLUNARIZINE
     Indication: Migraine
     Dosage: 5 MILLIGRAM, DAILY
     Route: 065
  5. ACETAMINOPHEN [Concomitant]
     Active Substance: ACETAMINOPHEN
     Indication: Migraine
     Dosage: 500 MILLIGRAM, BID
     Route: 065
  6. magnesium lactate+vitamin B6 [Concomitant]
     Indication: Migraine
     Dosage: (940 MG/10 MG), QD
     Route: 065
  7. magnesium lactate+vitamin B6 [Concomitant]
     Indication: Sleep disorder

REACTIONS (3)
  - Overdose [Unknown]
  - Coma [Recovered/Resolved]
  - Conduction disorder [Recovered/Resolved]
